FAERS Safety Report 13920809 (Version 1)
Quarter: 2017Q3

REPORT INFORMATION
  Report Type: Spontaneous
  Country: US (occurrence: US)
  Receive Date: 20170830
  Receipt Date: 20170830
  Transmission Date: 20171127
  Serious: No
  Sender: FDA-Public Use
  Company Number: US-BAYER-2017-163762

PATIENT
  Age: 55 Year
  Sex: Female
  Weight: 63.99 kg

DRUGS (1)
  1. ALEVE [Suspect]
     Active Substance: NAPROXEN SODIUM
     Indication: MIGRAINE
     Dosage: 1 DF, PRN
     Route: 048
     Dates: start: 2016, end: 20170824

REACTIONS (2)
  - Drug effect incomplete [Unknown]
  - Expired product administered [Unknown]

NARRATIVE: CASE EVENT DATE: 20170824
